FAERS Safety Report 6312411-8 (Version None)
Quarter: 2009Q3

REPORT INFORMATION
  Report Type: 
  Country: None (occurrence: None)
  Receive Date: 20090817
  Receipt Date: 20090812
  Transmission Date: 20100115
  Serious: Yes (Other)
  Sender: FDA-Public Use
  Company Number: US-JNJCH-2009021888

PATIENT
  Age: 23 Year
  Sex: Female
  Weight: 54.4 kg

DRUGS (5)
  1. BENADRYL ALLERGY KAPGELS [Suspect]
     Indication: INSOMNIA
     Route: 048
     Dates: start: 20090805, end: 20090811
  2. BENADRYL ALLERGY KAPGELS [Suspect]
     Indication: ALLERGY TO ARTHROPOD BITE
  3. VALTREX [Suspect]
     Indication: DRUG USE FOR UNKNOWN INDICATION
     Dosage: TEXT:UNSPECIFIED
     Route: 065
  4. FAMVIR [Concomitant]
     Indication: HERPES VIRUS INFECTION
     Route: 065
  5. PROTONIX [Concomitant]
     Indication: ABDOMINAL DISCOMFORT
     Route: 065

REACTIONS (2)
  - OFF LABEL USE [None]
  - RASH GENERALISED [None]
